FAERS Safety Report 8434841 (Version 3)
Quarter: 2012Q4

REPORT INFORMATION
  Report Type: 
  Country: CA (occurrence: CA)
  Receive Date: 20120301
  Receipt Date: 20121008
  Transmission Date: 20130627
  Serious: Yes (Hospitalization)
  Sender: FDA-Public Use
  Company Number: CA-JNJFOC-20120211351

PATIENT
  Age: 32 Year
  Sex: Female
  Weight: 70.5 kg

DRUGS (6)
  1. REMICADE [Suspect]
     Indication: CROHN^S DISEASE
     Route: 042
     Dates: start: 20100610
  2. REMICADE [Suspect]
     Indication: CROHN^S DISEASE
     Route: 042
     Dates: start: 20090610
  3. LABETALOL [Concomitant]
     Dosage: as necessary
     Route: 065
  4. IMURAN [Concomitant]
     Indication: CROHN^S DISEASE
     Route: 048
     Dates: start: 2007
  5. MATERNA [Concomitant]
     Indication: PREGNANCY
     Route: 065
     Dates: start: 201106, end: 201206
  6. FOLIC ACID [Concomitant]
     Indication: PREGNANCY
     Route: 065
     Dates: start: 201012, end: 201202

REACTIONS (3)
  - Caesarean section [Unknown]
  - Exposure during pregnancy [Recovered/Resolved]
  - Pre-eclampsia [Unknown]
